FAERS Safety Report 18273803 (Version 3)
Quarter: 2020Q4

REPORT INFORMATION
  Report Type: Report from Study
  Country: US (occurrence: US)
  Receive Date: 20200916
  Receipt Date: 20201217
  Transmission Date: 20210113
  Serious: Yes (Other)
  Sender: FDA-Public Use
  Company Number: US-BIOVITRUM-2020US4789

PATIENT
  Age: 51 Year
  Sex: Female

DRUGS (9)
  1. BYSTOLIC [Concomitant]
     Active Substance: NEBIVOLOL HYDROCHLORIDE
  2. COLCHICINE. [Concomitant]
     Active Substance: COLCHICINE
  3. FIORICET [Concomitant]
     Active Substance: ACETAMINOPHEN\BUTALBITAL\CAFFEINE
  4. MEDROL PACK [Concomitant]
  5. MULTIVITAMINS [Concomitant]
     Active Substance: VITAMINS
  6. VITAMIN B12 [Concomitant]
     Active Substance: CYANOCOBALAMIN
  7. LOMOTIL [Concomitant]
     Active Substance: ATROPINE SULFATE\DIPHENOXYLATE HYDROCHLORIDE
  8. KINERET [Suspect]
     Active Substance: ANAKINRA
     Indication: PYREXIA
     Route: 058
     Dates: start: 20200826
  9. MARINOL [Concomitant]
     Active Substance: DRONABINOL

REACTIONS (16)
  - Lower limb fracture [Unknown]
  - Injection site reaction [Recovering/Resolving]
  - Product dose omission issue [Unknown]
  - Injection site vesicles [Unknown]
  - Arterial occlusive disease [Unknown]
  - Injection site pain [Unknown]
  - Injection site erythema [Unknown]
  - Cellulitis [Unknown]
  - Injection site warmth [Unknown]
  - Off label use [Unknown]
  - Pyrexia [Unknown]
  - Condition aggravated [Unknown]
  - Illness [Unknown]
  - Fall [Unknown]
  - White blood cell count decreased [Unknown]
  - Arthralgia [Unknown]

NARRATIVE: CASE EVENT DATE: 20200826
